FAERS Safety Report 5031291-4 (Version None)
Quarter: 2006Q2

REPORT INFORMATION
  Report Type: 
  Country: None (occurrence: None)
  Receive Date: 20060619
  Receipt Date: 20060619
  Transmission Date: 20061013
  Serious: Yes (Hospitalization, Other)
  Sender: FDA-Public Use
  Company Number: None

PATIENT
  Age: 30 Year
  Sex: Male
  Weight: 92.5338 kg

DRUGS (2)
  1. ZIPRASIDONE HCL [Suspect]
     Indication: SCHIZOPHRENIA
     Dosage: 160 MG ONCE A DAY PO
     Route: 048
     Dates: start: 20060415, end: 20060529
  2. ZIPRASIDONE HCL [Suspect]
     Indication: SCHIZOPHRENIA
     Dosage: 160 MG ONCE A DAY PO
     Route: 048
     Dates: start: 20060415, end: 20060529

REACTIONS (2)
  - HALLUCINATION, AUDITORY [None]
  - PARANOIA [None]
